FAERS Safety Report 5313767-5 (Version None)
Quarter: 2007Q1

REPORT INFORMATION
  Report Type: 
  Country: None (occurrence: None)
  Receive Date: 20070111
  Receipt Date: 20060518
  Transmission Date: 20070707
  Serious: Yes (Other)
  Sender: FDA-Public Use
  Company Number: 145041USA

PATIENT
  Age: 52 Year
  Sex: Female

DRUGS (2)
  1. COPAXONE [Suspect]
     Indication: MULTIPLE SCLEROSIS
     Dosage: 20 MG (20 MG,ONCE A DAY), SUBCUTANEOUS
     Route: 058
     Dates: end: 20060201
  2. PROVELLA-14 [Concomitant]

REACTIONS (2)
  - HYPERSENSITIVITY [None]
  - SYNCOPE [None]
